FAERS Safety Report 8308798-7 (Version None)
Quarter: 2012Q2

REPORT INFORMATION
  Report Type: 
  Country: None (occurrence: None)
  Receive Date: 20120424
  Receipt Date: 20110808
  Transmission Date: 20120825
  Serious: Yes (Other)
  Sender: FDA-Public Use
  Company Number: US-TEVA-2010004565

PATIENT
  Sex: Female

DRUGS (3)
  1. PROVIGIL [Suspect]
     Indication: SOMNOLENCE
     Dosage: 200 MILLIGRAM;
     Route: 048
  2. PROVIGIL [Suspect]
     Indication: DEPRESSION
     Dosage: 100 MILLIGRAM;
     Route: 048
  3. PROVIGIL [Suspect]
     Indication: BIPOLAR DISORDER

REACTIONS (2)
  - DEPRESSION [None]
  - MENTAL STATUS CHANGES [None]
